FAERS Safety Report 7529903-6 (Version None)
Quarter: 2011Q2

REPORT INFORMATION
  Report Type: 
  Country: None (occurrence: None)
  Receive Date: 20110607
  Receipt Date: 20110531
  Transmission Date: 20111010
  Serious: Yes (Other)
  Sender: FDA-Public Use
  Company Number: US-US-EMD SERONO, INC.-7062732

PATIENT
  Sex: Female
  Weight: 48 kg

DRUGS (3)
  1. REBIF [Suspect]
     Route: 058
  2. REBIF [Suspect]
     Indication: MULTIPLE SCLEROSIS
     Route: 058
     Dates: start: 20040201
  3. REBIF [Suspect]
     Route: 058

REACTIONS (9)
  - SURGICAL PROCEDURE REPEATED [None]
  - OOPHORECTOMY [None]
  - PROCEDURAL COMPLICATION [None]
  - NEPHROLITHIASIS [None]
  - INJECTION SITE HAEMATOMA [None]
  - MENORRHAGIA [None]
  - INAPPROPRIATE SCHEDULE OF DRUG ADMINISTRATION [None]
  - UMBILICAL HERNIA [None]
  - INJECTION SITE IRRITATION [None]
